FAERS Safety Report 8954783 (Version 2)
Quarter: 2013Q1

REPORT INFORMATION
  Report Type: Spontaneous
  Country: CN (occurrence: CN)
  Receive Date: 20121207
  Receipt Date: 20130107
  Transmission Date: 20140127
  Serious: Yes (Hospitalization)
  Sender: FDA-Public Use
  Company Number: CN-GLAXOSMITHKLINE-B0850614A

PATIENT
  Age: 16 Year
  Sex: Female

DRUGS (3)
  1. LAMICTAL [Suspect]
     Indication: BIPOLAR DISORDER
     Dosage: 200MG PER DAY
     Route: 048
     Dates: end: 201211
  2. LITHIUM SALT [Concomitant]
     Indication: BIPOLAR DISORDER
     Dosage: .5MG PER DAY
     Route: 048
     Dates: end: 201210
  3. SEROQUEL [Concomitant]
     Indication: BIPOLAR DISORDER
     Dosage: 25MG PER DAY
     Route: 048

REACTIONS (1)
  - Ataxia [Not Recovered/Not Resolved]
